FAERS Safety Report 19381951 (Version 2)
Quarter: 2021Q2

REPORT INFORMATION
  Report Type: Spontaneous
  Country: US (occurrence: US)
  Receive Date: 20210607
  Receipt Date: 20210614
  Transmission Date: 20210717
  Serious: Yes (Life-Threatening, Hospitalization, Other)
  Sender: FDA-Public Use
  Company Number: US-CIPLA LTD.-2021US03868

PATIENT

DRUGS (5)
  1. DICYCLOMINE [Suspect]
     Active Substance: DICYCLOMINE HYDROCHLORIDE
     Dosage: UNK
     Route: 048
  2. HYDROXYZINE [Suspect]
     Active Substance: HYDROXYZINE HYDROCHLORIDE
     Dosage: UNK
     Route: 048
  3. ACETAMINOPHEN. [Suspect]
     Active Substance: ACETAMINOPHEN
     Dosage: UNK
     Route: 048
  4. DULOXETINE. [Interacting]
     Active Substance: DULOXETINE
     Dosage: UNK
     Route: 048
  5. LINACLOTIDE [Suspect]
     Active Substance: LINACLOTIDE
     Dosage: UNK
     Route: 048

REACTIONS (7)
  - Serotonin syndrome [Recovered/Resolved]
  - Toxicity to various agents [Recovered/Resolved]
  - Intentional overdose [Recovered/Resolved]
  - Drug level increased [Recovered/Resolved]
  - Acute hepatic failure [Recovered/Resolved]
  - Encephalopathy [Recovered/Resolved]
  - Drug interaction [Recovered/Resolved]
